FAERS Safety Report 8374051-9 (Version None)
Quarter: 2012Q2

REPORT INFORMATION
  Report Type: 
  Country: None (occurrence: None)
  Receive Date: 20120521
  Receipt Date: 20120515
  Transmission Date: 20120825
  Serious: Yes (Life-Threatening, Hospitalization, Other)
  Sender: FDA-Public Use
  Company Number: US-ASTRAZENECA-2009SE26231

PATIENT
  Age: 82 Year
  Sex: Female

DRUGS (2)
  1. NEXIUM [Suspect]
     Indication: GASTROOESOPHAGEAL REFLUX DISEASE
     Route: 048
     Dates: start: 20070101
  2. PRILOSEC [Suspect]
     Route: 048

REACTIONS (10)
  - GASTROOESOPHAGEAL REFLUX DISEASE [None]
  - COMA [None]
  - MALAISE [None]
  - CEREBROVASCULAR ACCIDENT [None]
  - INTENTIONAL DRUG MISUSE [None]
  - MYOCARDIAL INFARCTION [None]
  - HEARING IMPAIRED [None]
  - PHARYNGEAL DISORDER [None]
  - DEHYDRATION [None]
  - ABDOMINAL PAIN UPPER [None]
